FAERS Safety Report 5145281-4 (Version None)
Quarter: 2006Q4

REPORT INFORMATION
  Report Type: 
  Country: None (occurrence: None)
  Receive Date: 20061101
  Receipt Date: 20060920
  Transmission Date: 20070319
  Serious: Yes (Hospitalization)
  Sender: FDA-Public Use
  Company Number: 2006SP002573

PATIENT
  Age: 58 Year
  Sex: Female

DRUGS (2)
  1. PEG-INTRON [Suspect]
     Indication: HEPATITIS C
     Dosage: 120 MCG;QW;SC
     Route: 058
     Dates: start: 20060223
  2. REBETOL [Suspect]
     Indication: HEPATITIS C
     Dosage: 800 MG;QD; SC
     Route: 058
     Dates: start: 20060223

REACTIONS (1)
  - SYNCOPE [None]
